FAERS Safety Report 5572390-8 (Version None)
Quarter: 2007Q4

REPORT INFORMATION
  Report Type: 
  Country: None (occurrence: None)
  Receive Date: 20071222
  Receipt Date: 20071213
  Transmission Date: 20080405
  Serious: Yes (Other)
  Sender: FDA-Public Use
  Company Number: JP-PFIZER INC-2007102427

PATIENT
  Sex: Female

DRUGS (2)
  1. LIPITOR [Suspect]
     Indication: HYPERLIPIDAEMIA
     Route: 048
     Dates: start: 20071121, end: 20071123
  2. ALLEGRA [Concomitant]
     Indication: URTICARIA
     Dosage: TEXT:1(DF) QD PO
     Route: 048

REACTIONS (1)
  - STEVENS-JOHNSON SYNDROME [None]
